FAERS Safety Report 20361790 (Version 1)
Quarter: 2022Q1

REPORT INFORMATION
  Report Type: Spontaneous
  Country: US (occurrence: None)
  Receive Date: 20220120
  Receipt Date: 20220120
  Transmission Date: 20220423
  Serious: Yes (Hospitalization, Disabling, Other)
  Sender: FDA-Public Use
  Company Number: None

PATIENT
  Sex: Female
  Weight: 63 kg

DRUGS (1)
  1. ALENDRONATE [Suspect]
     Active Substance: ALENDRONATE SODIUM
     Indication: Osteoporosis
     Dosage: FREQUENCY : WEEKLY;?
     Dates: start: 20201101, end: 20211015

REACTIONS (6)
  - Fall [None]
  - Femoral neck fracture [None]
  - Headache [None]
  - Arthralgia [None]
  - Walking aid user [None]
  - Osteonecrosis of jaw [None]
